FAERS Safety Report 7797152-2 (Version None)
Quarter: 2011Q4

REPORT INFORMATION
  Report Type: 
  Country: None (occurrence: None)
  Receive Date: 20111005
  Receipt Date: 20110927
  Transmission Date: 20120403
  Serious: Yes (Death, Other)
  Sender: FDA-Public Use
  Company Number: MX-UCBSA-042223

PATIENT
  Sex: Female
  Weight: 75 kg

DRUGS (7)
  1. OMEPRAZOLE [Concomitant]
     Indication: PROPHYLAXIS AGAINST GASTROINTESTINAL ULCER
     Route: 048
     Dates: start: 20100501, end: 20110922
  2. FELODIPINE [Concomitant]
     Indication: ARRHYTHMIA
     Dosage: DAILY DOSE: 5/47.5 MG
     Route: 048
     Dates: start: 20100501, end: 20110922
  3. RISPERDAL [Concomitant]
     Indication: ANXIETY
     Route: 048
     Dates: start: 20100501, end: 20110922
  4. NUBRENZA [Suspect]
     Indication: ESSENTIAL TREMOR
     Route: 062
     Dates: start: 20110915, end: 20110922
  5. FELODIPINE [Concomitant]
     Indication: HYPERTENSION
     Dosage: DAILY DOSE: 5/47.5 MG
     Route: 048
     Dates: start: 20100501, end: 20110922
  6. PLAVIX [Concomitant]
     Indication: HYPERTENSION
     Route: 048
     Dates: start: 20100501, end: 20110922
  7. LASILACTON [Concomitant]
     Indication: HYPERTENSION
     Dosage: 50/20 MG
     Route: 048
     Dates: start: 20100501, end: 20110922

REACTIONS (3)
  - RESPIRATORY ARREST [None]
  - PNEUMONIA [None]
  - ILEUS [None]
